FAERS Safety Report 9013519 (Version 3)
Quarter: 2013Q1

REPORT INFORMATION
  Report Type: Spontaneous
  Country: US (occurrence: US)
  Receive Date: 20130115
  Receipt Date: 20130128
  Transmission Date: 20140127
  Serious: Yes (Hospitalization, Other)
  Sender: FDA-Public Use
  Company Number: US-SANOFI-AVENTIS-2013SA000444

PATIENT
  Sex: Male

DRUGS (3)
  1. AMARYL [Suspect]
     Indication: DIABETES MELLITUS
     Route: 048
  2. METFORMIN [Suspect]
     Indication: DIABETES MELLITUS
     Route: 065
  3. ANALGESICS [Concomitant]

REACTIONS (6)
  - Surgery [Unknown]
  - Intervertebral disc disorder [Unknown]
  - Blood glucose increased [Unknown]
  - Inappropriate schedule of drug administration [Unknown]
  - Incoherent [Unknown]
  - Confusional state [Not Recovered/Not Resolved]
